FAERS Safety Report 5999901-2 (Version None)
Quarter: 2008Q4

REPORT INFORMATION
  Report Type: 
  Country: None (occurrence: None)
  Receive Date: 20081215
  Receipt Date: 20081204
  Transmission Date: 20090506
  Serious: Yes (Other)
  Sender: FDA-Public Use
  Company Number: PHHY2008GB31035

PATIENT
  Sex: Male

DRUGS (1)
  1. CLOZARIL [Suspect]
     Indication: SCHIZOPHRENIA
     Dosage: 100 MG, BID
     Dates: start: 20081113

REACTIONS (3)
  - C-REACTIVE PROTEIN INCREASED [None]
  - HEART RATE IRREGULAR [None]
  - PRODUCTIVE COUGH [None]
